FAERS Safety Report 20625654 (Version 1)
Quarter: 2022Q1

REPORT INFORMATION
  Report Type: Spontaneous
  Country: US (occurrence: None)
  Receive Date: 20220323
  Receipt Date: 20220323
  Transmission Date: 20220423
  Serious: No
  Sender: FDA-Public Use
  Company Number: US-ROCHE-2990761

PATIENT
  Sex: Female

DRUGS (9)
  1. ERIVEDGE [Suspect]
     Active Substance: VISMODEGIB
     Indication: Basal cell carcinoma
     Dosage: TAKE 1 CAPSULE (150 MG) BY MOUTH DAILY
     Route: 048
     Dates: start: 20211124
  2. CANNABIDIOL [Concomitant]
     Active Substance: CANNABIDIOL
     Dosage: POW
  3. ADVIL [Concomitant]
     Active Substance: IBUPROFEN
  4. CARVEDILOL [Concomitant]
     Active Substance: CARVEDILOL
  5. ESOMEPRAZOLE [Concomitant]
     Active Substance: ESOMEPRAZOLE
     Dosage: CPD
  6. FUROSEMIDE [Concomitant]
     Active Substance: FUROSEMIDE
  7. POTASSIUM CHLORIDE [Concomitant]
     Active Substance: POTASSIUM CHLORIDE
     Dosage: TBC
  8. QUETIAPINE FUMARATE [Concomitant]
     Active Substance: QUETIAPINE FUMARATE
  9. VITAMIN D3 [Concomitant]
     Active Substance: CHOLECALCIFEROL
     Dosage: 25 MCG(100

REACTIONS (2)
  - Hypersomnia [Not Recovered/Not Resolved]
  - Nasal dryness [Not Recovered/Not Resolved]
